FAERS Safety Report 6611385-X (Version None)
Quarter: 2010Q1

REPORT INFORMATION
  Report Type: 
  Country: None (occurrence: None)
  Receive Date: 20100303
  Receipt Date: 20100224
  Transmission Date: 20100710
  Serious: Yes (Hospitalization, Other)
  Sender: FDA-Public Use
  Company Number: US-NAPPMUNDI-USA-2009-0038223

PATIENT
  Sex: Male

DRUGS (4)
  1. OXYCONTIN [Suspect]
     Indication: PAIN
     Dosage: UNK
     Dates: start: 19970501, end: 20041201
  2. OXYCONTIN [Suspect]
     Indication: OSTEOARTHRITIS
  3. OXYCONTIN [Suspect]
     Indication: ABDOMINAL OPERATION
  4. OXYCONTIN [Suspect]
     Indication: JOINT ARTHROPLASTY

REACTIONS (10)
  - AMNESIA [None]
  - DEPRESSION [None]
  - DRUG DEPENDENCE [None]
  - DRUG WITHDRAWAL SYNDROME [None]
  - EMOTIONAL DISTRESS [None]
  - HEADACHE [None]
  - HOSPITALISATION [None]
  - INJURY [None]
  - MEMORY IMPAIRMENT [None]
  - ROAD TRAFFIC ACCIDENT [None]
